FAERS Safety Report 6400009-2 (Version None)
Quarter: 2009Q4

REPORT INFORMATION
  Report Type: 
  Country: None (occurrence: None)
  Receive Date: 20091008
  Receipt Date: 20091008
  Transmission Date: 20100525
  Serious: Yes (Life-Threatening, Hospitalization)
  Sender: FDA-Public Use
  Company Number: None

PATIENT
  Age: 30 Year
  Sex: Female
  Weight: 88.4514 kg

DRUGS (2)
  1. HUMIRA [Suspect]
     Indication: ARTHRITIS
     Dosage: EVERY TWO WEEKS IM
     Route: 030
     Dates: start: 20090609, end: 20090812
  2. HUMIRA [Suspect]
     Indication: CROHN'S DISEASE
     Dosage: EVERY TWO WEEKS IM
     Route: 030
     Dates: start: 20090609, end: 20090812

REACTIONS (9)
  - ACTIVITIES OF DAILY LIVING IMPAIRED [None]
  - ANXIETY [None]
  - FALL [None]
  - GRIP STRENGTH DECREASED [None]
  - HEAD INJURY [None]
  - MUSCLE DISORDER [None]
  - MUSCULAR WEAKNESS [None]
  - SWOLLEN TONGUE [None]
  - TREMOR [None]
